FAERS Safety Report 4711110-3 (Version None)
Quarter: 2005Q3

REPORT INFORMATION
  Report Type: 
  Country: None (occurrence: None)
  Receive Date: 20050708
  Receipt Date: 20050627
  Transmission Date: 20060218
  Serious: Yes (Hospitalization)
  Sender: FDA-Public Use
  Company Number: 2005-06-2075

PATIENT
  Age: 49 Year
  Sex: Male
  Weight: 95 kg

DRUGS (5)
  1. INTRON A [Suspect]
     Indication: MALIGNANT MELANOMA
     Dosage: 41 MIU QD INTRAVENOUS
     Route: 042
     Dates: start: 20050613, end: 20050628
  2. SEROXAT [Suspect]
     Indication: PROPHYLAXIS
     Dosage: 20 MG QD ORAL
     Route: 048
     Dates: start: 20050606, end: 20050629
  3. GRANISETRON [Concomitant]
  4. VOLTAREN [Concomitant]
  5. METOCLOPRAMIDE HYDROCHLORIDE [Concomitant]

REACTIONS (5)
  - ANGINA PECTORIS [None]
  - ENDOTHELIAL DYSFUNCTION [None]
  - FALL [None]
  - LOSS OF CONSCIOUSNESS [None]
  - VERTIGO [None]
